FAERS Safety Report 7783538-9 (Version None)
Quarter: 2011Q3

REPORT INFORMATION
  Report Type: 
  Country: None (occurrence: None)
  Receive Date: 20110928
  Receipt Date: 20110928
  Transmission Date: 20111222
  Serious: Yes (Hospitalization)
  Sender: FDA-Public Use
  Company Number: None

PATIENT
  Age: 48 Year
  Sex: Female
  Weight: 56.699 kg

DRUGS (2)
  1. CIPROFLOXACIN [Concomitant]
     Indication: SINUS DISORDER
     Dosage: TAKE
     Route: 048
  2. LEVAQUIN [Suspect]
     Indication: BACTERIAL INFECTION
     Dosage: TAKE 1
     Route: 048

REACTIONS (16)
  - INFECTION [None]
  - BONE DISORDER [None]
  - POSTURE ABNORMAL [None]
  - VISUAL IMPAIRMENT [None]
  - BEDRIDDEN [None]
  - DEPRESSION [None]
  - WEIGHT INCREASED [None]
  - HYPOPHAGIA [None]
  - MUSCULAR WEAKNESS [None]
  - MALAISE [None]
  - BURNING SENSATION [None]
  - GASTRIC DISORDER [None]
  - ABDOMINAL PAIN UPPER [None]
  - QUALITY OF LIFE DECREASED [None]
  - PARAESTHESIA [None]
  - PAIN [None]
